FAERS Safety Report 12334403 (Version 1)
Quarter: 2016Q2

REPORT INFORMATION
  Report Type: Spontaneous
  Country: US (occurrence: US)
  Receive Date: 20160504
  Receipt Date: 20160504
  Transmission Date: 20160815
  Serious: No
  Sender: FDA-Public Use
  Company Number: US-ROCHE-ITM201503IM011176

PATIENT
  Sex: Male

DRUGS (3)
  1. ASPIRIN. [Concomitant]
     Active Substance: ASPIRIN
  2. ESBRIET [Suspect]
     Active Substance: PIRFENIDONE
     Indication: IDIOPATHIC PULMONARY FIBROSIS
     Dosage: 3 CAPSULES THRICE A DAY
     Route: 048
     Dates: start: 20150209
  3. OXYGEN. [Concomitant]
     Active Substance: OXYGEN

REACTIONS (8)
  - Memory impairment [Unknown]
  - Nervousness [Unknown]
  - Exercise tolerance decreased [Unknown]
  - Anxiety [Unknown]
  - Feeling jittery [Unknown]
  - Dyspnoea [Unknown]
  - Rhinorrhoea [Unknown]
  - Drug effect decreased [Unknown]
